FAERS Safety Report 5356961-X (Version None)
Quarter: 2007Q2

REPORT INFORMATION
  Report Type: 
  Country: None (occurrence: None)
  Receive Date: 20070530
  Receipt Date: 20070314
  Transmission Date: 20071010
  Serious: Yes (Other)
  Sender: FDA-Public Use
  Company Number: US200701004373

PATIENT
  Sex: Male
  Weight: 99.8 kg

DRUGS (5)
  1. ZYPREXA [Suspect]
     Indication: DEPRESSION
     Dosage: 2.5 MG
     Dates: start: 20011024, end: 20021219
  2. ZYPREXA [Suspect]
     Indication: DEPRESSION
     Dosage: 2.5 MG
     Dates: start: 20020101, end: 20030101
  3. PAXIL [Concomitant]
  4. EFFEXOR [Concomitant]
  5. ELAVIL [Concomitant]

REACTIONS (6)
  - BLOOD CHOLESTEROL INCREASED [None]
  - BLOOD TRIGLYCERIDES INCREASED [None]
  - DIABETES MELLITUS [None]
  - OBESITY [None]
  - PANCREATITIS [None]
  - WEIGHT INCREASED [None]
